FAERS Safety Report 6744548-3 (Version None)
Quarter: 2010Q2

REPORT INFORMATION
  Report Type: 
  Country: None (occurrence: None)
  Receive Date: 20100527
  Receipt Date: 20100517
  Transmission Date: 20101027
  Serious: Yes (Hospitalization)
  Sender: FDA-Public Use
  Company Number: US-ELI_LILLY_AND_COMPANY-US201005004882

PATIENT
  Sex: Male

DRUGS (1)
  1. BYETTA [Suspect]
     Route: 058

REACTIONS (3)
  - FALL [None]
  - UPPER LIMB FRACTURE [None]
  - WEIGHT DECREASED [None]
